FAERS Safety Report 8013595-6 (Version None)
Quarter: 2011Q4

REPORT INFORMATION
  Report Type: 
  Country: None (occurrence: None)
  Receive Date: 20111229
  Receipt Date: 20111219
  Transmission Date: 20120403
  Serious: Yes (Other)
  Sender: FDA-Public Use
  Company Number: US-BAYER-2011-012753

PATIENT
  Age: 29 Year
  Sex: Female
  Weight: 53 kg

DRUGS (4)
  1. FLUDROCORTISONE ACETATE [Concomitant]
     Dosage: 0.05 MG, QD
  2. YASMIN [Suspect]
     Indication: ORAL CONTRACEPTION
     Dosage: UNK
     Dates: start: 20040101, end: 20090101
  3. YAZ [Suspect]
     Indication: ORAL CONTRACEPTION
     Dosage: UNK
     Dates: start: 20040101, end: 20090101
  4. METOPROLOL SUCCINATE [Concomitant]
     Dosage: 12.5 MG, QD

REACTIONS (3)
  - THROMBOSIS [None]
  - DEEP VEIN THROMBOSIS [None]
  - PAIN [None]
